FAERS Safety Report 23889927 (Version 7)
Quarter: 2025Q2

REPORT INFORMATION
  Report Type: Spontaneous
  Country: US (occurrence: US)
  Receive Date: 20240523
  Receipt Date: 20250411
  Transmission Date: 20250716
  Serious: No
  Sender: VERTEX
  Company Number: US-VERTEX PHARMACEUTICALS-2024-008685

PATIENT
  Sex: Female

DRUGS (4)
  1. TRIKAFTA [Suspect]
     Active Substance: ELEXACAFTOR\IVACAFTOR\TEZACAFTOR
     Indication: Cystic fibrosis
     Route: 048
  2. TRIKAFTA [Suspect]
     Active Substance: ELEXACAFTOR\IVACAFTOR\TEZACAFTOR
     Route: 048
  3. TRIKAFTA [Suspect]
     Active Substance: ELEXACAFTOR\IVACAFTOR\TEZACAFTOR
     Route: 048
  4. TRIKAFTA [Suspect]
     Active Substance: ELEXACAFTOR\IVACAFTOR\TEZACAFTOR
     Route: 048

REACTIONS (11)
  - Diarrhoea [Unknown]
  - Urticaria [Unknown]
  - Nausea [Unknown]
  - Obstructive airways disorder [Unknown]
  - Weight decreased [Unknown]
  - Scar [Unknown]
  - Depressed mood [Unknown]
  - Pseudomonas infection [Unknown]
  - Fatigue [Recovering/Resolving]
  - Brain fog [Recovering/Resolving]
  - Dysmenorrhoea [Not Recovered/Not Resolved]
